FAERS Safety Report 6774374-0 (Version None)
Quarter: 2010Q2

REPORT INFORMATION
  Report Type: 
  Country: None (occurrence: None)
  Receive Date: 20100617
  Receipt Date: 20100614
  Transmission Date: 20101027
  Serious: Yes (Death)
  Sender: FDA-Public Use
  Company Number: DE-JNJFOC-20100603911

PATIENT
  Age: 99 Year
  Sex: Female

DRUGS (13)
  1. DIPIPERON [Suspect]
     Indication: DRUG USE FOR UNKNOWN INDICATION
     Route: 048
  2. HALDOL [Suspect]
     Indication: DRUG USE FOR UNKNOWN INDICATION
     Route: 048
     Dates: start: 20091019, end: 20091102
  3. HALDOL [Suspect]
     Route: 048
     Dates: start: 20091019, end: 20091102
  4. METOPROLOL SUCCINATE [Suspect]
     Indication: DRUG USE FOR UNKNOWN INDICATION
     Route: 048
  5. ASPIRIN [Suspect]
     Indication: DRUG USE FOR UNKNOWN INDICATION
     Route: 048
     Dates: end: 20091105
  6. ZOLPIDEM [Concomitant]
     Route: 048
     Dates: end: 20091105
  7. DIAZEPAM [Concomitant]
     Indication: DRUG USE FOR UNKNOWN INDICATION
     Route: 048
     Dates: start: 20091019, end: 20091105
  8. DIAZEPAM [Concomitant]
     Route: 048
     Dates: start: 20091019, end: 20091105
  9. DIAZEPAM [Concomitant]
     Route: 048
     Dates: start: 20091019, end: 20091105
  10. DIAZEPAM [Concomitant]
     Route: 048
     Dates: start: 20091019, end: 20091105
  11. DIAZEPAM [Concomitant]
     Route: 048
     Dates: start: 20091019, end: 20091105
  12. LASIX [Concomitant]
     Route: 048
     Dates: end: 20091105
  13. LISINOPRIL [Concomitant]
     Route: 048
     Dates: end: 20091105

REACTIONS (2)
  - AKATHISIA [None]
  - DEATH [None]
